FAERS Safety Report 4842628-0 (Version None)
Quarter: 2005Q4

REPORT INFORMATION
  Report Type: 
  Country: None (occurrence: None)
  Receive Date: 20051201
  Receipt Date: 20051122
  Transmission Date: 20060501
  Serious: Yes (Hospitalization)
  Sender: FDA-Public Use
  Company Number: FR-GLAXOSMITHKLINE-B0402124A

PATIENT
  Age: 82 Year
  Sex: Female

DRUGS (6)
  1. AUGMENTIN [Suspect]
     Indication: ABDOMINAL INFECTION
     Dates: start: 20050723, end: 20050826
  2. PREVISCAN [Suspect]
     Route: 048
     Dates: start: 20050823, end: 20050824
  3. NEXIUM [Suspect]
     Dosage: 20MG PER DAY
     Route: 048
  4. KARDEGIC [Concomitant]
     Dates: end: 20050826
  5. ROCEPHIN [Concomitant]
     Dates: start: 20050826
  6. FLAGYL [Concomitant]
     Dates: start: 20050826

REACTIONS (5)
  - AGRANULOCYTOSIS [None]
  - BONE MARROW MYELOGRAM ABNORMAL [None]
  - EOSINOPHILIA [None]
  - PHARYNGOLARYNGEAL PAIN [None]
  - PYREXIA [None]
